FAERS Safety Report 5664916-0 (Version None)
Quarter: 2008Q1

REPORT INFORMATION
  Report Type: 
  Country: None (occurrence: None)
  Receive Date: 20080314
  Receipt Date: 20080303
  Transmission Date: 20080703
  Serious: Yes (Other)
  Sender: FDA-Public Use
  Company Number: GB-PFIZER INC-2008020230

PATIENT
  Sex: Male

DRUGS (5)
  1. GEODON [Suspect]
  2. LITHIUM CARBONATE [Interacting]
  3. SERTRALINE [Interacting]
  4. LAMOTRIGINE [Interacting]
  5. OLANZAPINE [Interacting]

REACTIONS (3)
  - AGITATION [None]
  - DISORIENTATION [None]
  - DRUG INTERACTION [None]
